FAERS Safety Report 15423401 (Version 1)
Quarter: 2018Q3

REPORT INFORMATION
  Report Type: Spontaneous
  Country: US (occurrence: US)
  Receive Date: 20180918
  Receipt Date: 20180918
  Transmission Date: 20181010
  Serious: No
  Sender: FDA-Public Use
  Company Number: None

PATIENT
  Age: 61 Year
  Sex: Female
  Weight: 89.81 kg

DRUGS (1)
  1. XELJANZ [Suspect]
     Active Substance: TOFACITINIB CITRATE
     Indication: PSORIATIC ARTHROPATHY
     Route: 048
     Dates: start: 201807

REACTIONS (7)
  - Drug ineffective [None]
  - Malaise [None]
  - Pulmonary congestion [None]
  - Ear congestion [None]
  - Throat tightness [None]
  - Therapy cessation [None]
  - Nasal congestion [None]
